FAERS Safety Report 7343042-9 (Version None)
Quarter: 2011Q1

REPORT INFORMATION
  Report Type: 
  Country: None (occurrence: None)
  Receive Date: 20110308
  Receipt Date: 20110308
  Transmission Date: 20110831
  Serious: Yes (Hospitalization)
  Sender: FDA-Public Use
  Company Number: None

PATIENT
  Age: 72 Year
  Sex: Male

DRUGS (2)
  1. TEMAZEPAM [Suspect]
     Dosage: 15 MG AT BEDTIME PO
     Route: 048
     Dates: start: 20020411, end: 20110128
  2. ACETAMINOPHEN AND HYDROCODONE BITARTRATE [Suspect]
     Indication: PAIN
     Dosage: 5/500 MG PRN PO
     Route: 048
     Dates: start: 20050426

REACTIONS (4)
  - FALL [None]
  - CHEST PAIN [None]
  - DIZZINESS [None]
  - HIP FRACTURE [None]
